FAERS Safety Report 8831148 (Version 1)
Quarter: 2012Q4

REPORT INFORMATION
  Report Type: 
  Country: US (occurrence: US)
  Receive Date: 20121008
  Receipt Date: 20121008
  Transmission Date: 20130627
  Serious: No
  Sender: FDA-Public Use
  Company Number: US-VERTEX PHARMACEUTICAL INC.-2012-021424

PATIENT
  Sex: Male

DRUGS (9)
  1. VX-950 [Suspect]
     Indication: HEPATITIS C
     Dosage: 750 mg, tid
     Route: 048
  2. RIBAPAK [Concomitant]
     Indication: HEPATITIS C
     Dosage: 600 mg, UNK
  3. PEGASYS [Concomitant]
     Indication: HEPATITIS C
     Dosage: UNK
  4. VITAMIN D3 [Concomitant]
  5. KLOR-CON M15 [Concomitant]
  6. AMILORIDE [Concomitant]
     Dosage: 5 mg, UNK
  7. XIFAXAN [Concomitant]
     Dosage: 200 mg, UNK
  8. FUROSEMIDE [Concomitant]
     Dosage: 20 mg, UNK
  9. LACTULOSE [Concomitant]
     Dosage: 10g/15

REACTIONS (1)
  - Oedema peripheral [Unknown]
